FAERS Safety Report 4733416-4 (Version None)
Quarter: 2005Q3

REPORT INFORMATION
  Report Type: 
  Country: None (occurrence: None)
  Receive Date: 20050729
  Receipt Date: 20050722
  Transmission Date: 20060218
  Serious: Yes (Other)
  Sender: FDA-Public Use
  Company Number: GBWYE853022JUL05

PATIENT
  Sex: Female

DRUGS (1)
  1. IBUPROFEN [Suspect]
     Dosage: 2 TABLET 1X PER 1 DAY
     Dates: start: 20050721, end: 20050721

REACTIONS (1)
  - HYPERSENSITIVITY [None]
